FAERS Safety Report 4844459-4 (Version None)
Quarter: 2005Q4

REPORT INFORMATION
  Report Type: 
  Country: None (occurrence: None)
  Receive Date: 20051202
  Receipt Date: 20050812
  Transmission Date: 20060501
  Serious: Yes (Hospitalization)
  Sender: FDA-Public Use
  Company Number: US-MERCK-0508USA02385

PATIENT
  Age: 36 Year
  Sex: Male

DRUGS (1)
  1. VIOXX [Suspect]
     Route: 048
     Dates: start: 20000301, end: 20030901

REACTIONS (10)
  - ACUTE MYOCARDIAL INFARCTION [None]
  - ANXIETY [None]
  - BACK PAIN [None]
  - CARDIAC FAILURE CONGESTIVE [None]
  - CORONARY ARTERY DISEASE [None]
  - HYPERLIPIDAEMIA [None]
  - PAIN [None]
  - PULMONARY OEDEMA [None]
  - STENT PLACEMENT [None]
  - VENTRICULAR TACHYCARDIA [None]
